FAERS Safety Report 6968218-1 (Version None)
Quarter: 2010Q3

REPORT INFORMATION
  Report Type: 
  Country: None (occurrence: None)
  Receive Date: 20100907
  Receipt Date: 20100902
  Transmission Date: 20110219
  Serious: Yes (Other)
  Sender: FDA-Public Use
  Company Number: JP-ROCHE-690065

PATIENT
  Sex: Female

DRUGS (12)
  1. TOCILIZUMAB [Suspect]
     Indication: RHEUMATOID ARTHRITIS
     Route: 041
     Dates: start: 20090408, end: 20090408
  2. TOCILIZUMAB [Suspect]
     Route: 041
     Dates: start: 20090422, end: 20090422
  3. TOCILIZUMAB [Suspect]
     Route: 041
     Dates: start: 20090520, end: 20090520
  4. TOCILIZUMAB [Suspect]
     Route: 041
     Dates: start: 20090617, end: 20090617
  5. TOCILIZUMAB [Suspect]
     Route: 041
     Dates: start: 20090729, end: 20090729
  6. TOCILIZUMAB [Suspect]
     Route: 041
     Dates: start: 20090826, end: 20090826
  7. PREDONINE [Concomitant]
     Route: 048
     Dates: start: 20060418, end: 20070313
  8. PREDONINE [Concomitant]
     Route: 048
     Dates: start: 20070314
  9. EVISTA [Concomitant]
     Dosage: DRUG REPORTED AS EVISTA TAB 60MG
     Route: 048
  10. VOLTAREN [Concomitant]
     Route: 054
  11. LASIX [Concomitant]
     Dosage: DOSE FORM: PERORAL AGENT
     Route: 048
  12. KETOPROFEN [Concomitant]
     Dosage: DRUG REPORTED AS MOHRUS TAPE
     Route: 061

REACTIONS (1)
  - PNEUMOPERITONEUM [None]
